FAERS Safety Report 14386927 (Version 1)
Quarter: 2018Q1

REPORT INFORMATION
  Report Type: Spontaneous
  Country: US (occurrence: US)
  Receive Date: 20180115
  Receipt Date: 20180115
  Transmission Date: 20180509
  Serious: Yes (Other)
  Sender: FDA-Public Use
  Company Number: US-SA-2017SA151735

PATIENT
  Age: 57 Year
  Sex: Female
  Weight: 99.79 kg

DRUGS (5)
  1. TAXOTERE [Suspect]
     Active Substance: DOCETAXEL
     Indication: UTERINE CANCER
     Route: 051
     Dates: start: 20071002, end: 20071002
  2. PARAPLATIN [Concomitant]
     Active Substance: CARBOPLATIN
  3. TAXOTERE [Suspect]
     Active Substance: DOCETAXEL
     Indication: NEOPLASM MALIGNANT
     Route: 051
     Dates: start: 20070723, end: 20070723
  4. TAXOTERE [Suspect]
     Active Substance: DOCETAXEL
     Indication: UTERINE CANCER
     Route: 051
     Dates: start: 20070723, end: 20070723
  5. TAXOTERE [Suspect]
     Active Substance: DOCETAXEL
     Indication: NEOPLASM MALIGNANT
     Route: 051
     Dates: start: 20071002, end: 20071002

REACTIONS (1)
  - Alopecia [Not Recovered/Not Resolved]

NARRATIVE: CASE EVENT DATE: 2007
